FAERS Safety Report 8089393-4 (Version None)
Quarter: 2012Q1

REPORT INFORMATION
  Report Type: 
  Country: None (occurrence: None)
  Receive Date: 20120128
  Receipt Date: 20110630
  Transmission Date: 20120608
  Serious: No
  Sender: FDA-Public Use
  Company Number: US-ABBOTT-11P-163-0835781-00

PATIENT
  Age: 32 Year
  Sex: Female

DRUGS (8)
  1. CITALOPRAM [Concomitant]
     Indication: DEPRESSION
  2. SYNTHROID [Concomitant]
     Indication: HYPOTHYROIDISM
     Dosage: UNKNOWN
  3. PENTASA [Concomitant]
     Indication: CROHN'S DISEASE
  4. MAGNESIUM [Concomitant]
     Indication: MAGNESIUM DEFICIENCY
  5. NEXIUM [Concomitant]
     Indication: PROPHYLAXIS AGAINST GASTROINTESTINAL ULCER
  6. POTASSIUM [Concomitant]
     Indication: HYPOKALAEMIA
  7. HUMIRA [Suspect]
     Indication: CROHN'S DISEASE
     Dates: start: 20110301
  8. MULTI-VITAMIN [Concomitant]
     Indication: VITAMIN SUPPLEMENTATION
     Dosage: DAILY

REACTIONS (3)
  - INJECTION SITE PAIN [None]
  - DEVICE MALFUNCTION [None]
  - INJECTION SITE HAEMORRHAGE [None]
